FAERS Safety Report 4696118-9 (Version None)
Quarter: 2005Q2

REPORT INFORMATION
  Report Type: 
  Country: None (occurrence: None)
  Receive Date: 20050608
  Receipt Date: 20040818
  Transmission Date: 20051028
  Serious: Yes (Other)
  Sender: FDA-Public Use
  Company Number: 378111

PATIENT

DRUGS (2)
  1. ACCUTANE [Suspect]
     Dates: start: 20020410, end: 20020915
  2. CONTRACEPTIVE PILL NOS (ORAL CONTRACEPTIVE NOS) [Concomitant]

REACTIONS (3)
  - LIVE BIRTH [None]
  - NO ADVERSE EFFECT [None]
  - PREGNANCY [None]
